FAERS Safety Report 11301623 (Version 1)
Quarter: 2015Q3

REPORT INFORMATION
  Report Type: Spontaneous
  Country: BE (occurrence: None)
  Receive Date: 20150722
  Receipt Date: 20150722
  Transmission Date: 20151125
  Serious: Yes (Hospitalization)
  Sender: FDA-Public Use
  Company Number: 2015HINLIT0573

PATIENT
  Age: 56 Year
  Sex: Male

DRUGS (1)
  1. SILDENAFIL (SILDENAFIL) UNKNOWN [Suspect]
     Active Substance: SILDENAFIL
     Indication: PRODUCT USED FOR UNKNOWN INDICATION

REACTIONS (7)
  - Vomiting [None]
  - Vision blurred [None]
  - Sinus tachycardia [None]
  - Intentional overdose [None]
  - Leukocytosis [None]
  - Suicide attempt [None]
  - Renal impairment [None]
